FAERS Safety Report 11215025 (Version 1)
Quarter: 2015Q2

REPORT INFORMATION
  Report Type: Spontaneous
  Country: CN (occurrence: None)
  Receive Date: 20150622
  Receipt Date: 20150622
  Transmission Date: 20150821
  Serious: Yes (Death)
  Sender: FDA-Public Use
  Company Number: FK201502919

PATIENT
  Age: 47 Year
  Sex: Female
  Weight: 37 kg

DRUGS (13)
  1. FENTANYL (FENTANYL) [Suspect]
     Active Substance: FENTANYL
     Indication: INDUCTION OF ANAESTHESIA
     Dosage: 2 ML, PCA: 2ML/HR, BOLUS 4ML, LOCKOUT 30 MIN
     Route: 042
  2. SEVOFLURANE. [Concomitant]
     Active Substance: SEVOFLURANE
  3. NEOSTIGMINE [Concomitant]
     Active Substance: NEOSTIGMINE
  4. CLINDAMYCIN [Suspect]
     Active Substance: CLINDAMYCIN\CLINDAMYCIN PHOSPHATE
     Indication: PRODUCT USED FOR UNKNOWN INDICATION
     Dosage: 1.2 GRAM INFUSED OVER 30 MINUTES
     Route: 042
  5. CISATRACURIUM [Suspect]
     Active Substance: CISATRACURIUM
     Indication: MAINTENANCE OF ANAESTHESIA
     Route: 042
  6. TRAMADOL [Concomitant]
     Active Substance: TRAMADOL
  7. NITROUS OXIDE. [Concomitant]
     Active Substance: NITROUS OXIDE
  8. CEFOTIAM [Concomitant]
     Active Substance: CEFOTIAM
  9. PANTOPRAZOLE [Concomitant]
     Active Substance: PANTOPRAZOLE SODIUM
  10. MIDAZOLAM [Concomitant]
     Active Substance: MIDAZOLAM\MIDAZOLAM HYDROCHLORIDE
  11. ETOMIDATE. [Concomitant]
     Active Substance: ETOMIDATE
  12. PROPOFOL. [Concomitant]
     Active Substance: PROPOFOL
  13. ATROPINE [Concomitant]
     Active Substance: ATROPINE

REACTIONS (6)
  - Respiratory depression [None]
  - Potentiating drug interaction [None]
  - Incorrect drug administration rate [None]
  - Overdose [None]
  - Nausea [None]
  - Cardiac arrest [None]
